FAERS Safety Report 19950560 (Version 4)
Quarter: 2021Q4

REPORT INFORMATION
  Report Type: Spontaneous
  Country: US (occurrence: US)
  Receive Date: 20211013
  Receipt Date: 20211123
  Transmission Date: 20220303
  Serious: No
  Sender: FDA-Public Use
  Company Number: US-BAYER-2021A226262

PATIENT
  Age: 75 Year
  Sex: Female

DRUGS (2)
  1. CLARITIN-D 24 HOUR [Suspect]
     Active Substance: LORATADINE\PSEUDOEPHEDRINE SULFATE
     Indication: Hypersensitivity
     Dosage: 1 DF, QD(I TABLET IN A DAY AND AFTER 24 HOURS I TOOK ANOTHER 1. DOSE)
     Route: 048
     Dates: start: 20210110, end: 20210310
  2. CLARITIN-D 24 HOUR [Suspect]
     Active Substance: LORATADINE\PSEUDOEPHEDRINE SULFATE
     Indication: Nasopharyngitis

REACTIONS (6)
  - Dizziness [Recovered/Resolved]
  - Fall [Recovered/Resolved]
  - Malaise [Recovering/Resolving]
  - Chest pain [Recovered/Resolved]
  - Product lot number issue [None]
  - Product expiration date issue [None]

NARRATIVE: CASE EVENT DATE: 20210210
